FAERS Safety Report 13827717 (Version 2)
Quarter: 2018Q4

REPORT INFORMATION
  Report Type: Spontaneous
  Country: FR (occurrence: FR)
  Receive Date: 20170803
  Receipt Date: 20181003
  Transmission Date: 20190204
  Serious: Yes (Hospitalization, Other)
  Sender: FDA-Public Use
  Company Number: FR-MERCK KGAA-2024106

PATIENT
  Age: 23 Year
  Sex: Female

DRUGS (10)
  1. EUTHYROX [Suspect]
     Active Substance: LEVOTHYROXINE SODIUM
     Indication: PRODUCT USED FOR UNKNOWN INDICATION
  2. ADCIRCA [Suspect]
     Active Substance: TADALAFIL
     Route: 048
     Dates: start: 20120227
  3. FRAXODI [Suspect]
     Active Substance: NADROPARIN CALCIUM
     Dates: start: 20121205, end: 20130227
  4. SANMIGRAN [Concomitant]
     Active Substance: PIZOTYLINE MALEATE
  5. SECTRAL [Suspect]
     Active Substance: ACEBUTOLOL HYDROCHLORIDE
     Dates: start: 201202, end: 20130227
  6. PREVISCAN (FLUINDIONE) [Suspect]
     Active Substance: FLUINDIONE
     Dates: start: 200707, end: 20121205
  7. ADCIRCA [Suspect]
     Active Substance: TADALAFIL
     Route: 048
     Dates: end: 20130227
  8. TRACLEER [Concomitant]
     Active Substance: BOSENTAN
  9. FRAXODI [Suspect]
     Active Substance: NADROPARIN CALCIUM
     Dates: end: 201209
  10. MINIDRIL (EUGYNON) [Concomitant]
     Active Substance: ETHINYL ESTRADIOL\LEVONORGESTREL

REACTIONS (11)
  - Haematoma [Unknown]
  - Maternal exposure during pregnancy [Recovered/Resolved]
  - Vomiting [Unknown]
  - Complication of pregnancy [Recovered/Resolved]
  - Metrorrhagia [None]
  - Premature delivery [Recovered/Resolved]
  - Premature separation of placenta [Recovered/Resolved]
  - Live birth [Recovered/Resolved]
  - Intrapartum haemorrhage [Unknown]
  - Oligohydramnios [Recovered/Resolved]
  - Cardiac disorder [Unknown]

NARRATIVE: CASE EVENT DATE: 20120815
